FAERS Safety Report 16372207 (Version 1)
Quarter: 2019Q2

REPORT INFORMATION
  Report Type: Spontaneous
  Country: ES (occurrence: ES)
  Receive Date: 20190530
  Receipt Date: 20190530
  Transmission Date: 20190711
  Serious: Yes (Other)
  Sender: FDA-Public Use
  Company Number: ES-TEVA-2019-ES-1056189

PATIENT
  Age: 53 Year
  Sex: Female

DRUGS (3)
  1. LORMETAZEPAM (88A) [Concomitant]
     Active Substance: LORMETAZEPAM
     Route: 048
  2. PARACETAMOL (12A) [Concomitant]
     Active Substance: ACETAMINOPHEN
  3. FLUOXETINA (2331A) [Suspect]
     Active Substance: FLUOXETINE HYDROCHLORIDE
     Route: 048
     Dates: start: 20180416, end: 20180427

REACTIONS (2)
  - Decreased appetite [Recovered/Resolved]
  - Suicidal ideation [Recovered/Resolved]

NARRATIVE: CASE EVENT DATE: 20180416
